FAERS Safety Report 19240321 (Version 1)
Quarter: 2021Q2

REPORT INFORMATION
  Report Type: Spontaneous
  Country: US (occurrence: US)
  Receive Date: 20210511
  Receipt Date: 20210511
  Transmission Date: 20210717
  Serious: No
  Sender: FDA-Public Use
  Company Number: US-AMGEN-USASP2021067464

PATIENT
  Sex: Female

DRUGS (6)
  1. KANJINTI [Suspect]
     Active Substance: TRASTUZUMAB-ANNS
     Dosage: 310 MILLIGRAM, QMO
     Route: 065
  2. KANJINTI [Suspect]
     Active Substance: TRASTUZUMAB-ANNS
     Indication: BREAST CANCER
     Dosage: QMO
     Route: 065
     Dates: start: 20200409
  3. KANJINTI [Suspect]
     Active Substance: TRASTUZUMAB-ANNS
     Dosage: 315 UNK, QMO
     Route: 065
     Dates: start: 20210430
  4. KANJINTI [Suspect]
     Active Substance: TRASTUZUMAB-ANNS
     Dosage: 315 MILLIGRAM, QMO
     Route: 065
  5. KANJINTI [Suspect]
     Active Substance: TRASTUZUMAB-ANNS
     Dosage: 336 MILLIGRAM, QMO
     Route: 065
     Dates: start: 202101
  6. KANJINTI [Suspect]
     Active Substance: TRASTUZUMAB-ANNS
     Dosage: UNK, QMO
     Route: 065
     Dates: start: 20210401

REACTIONS (1)
  - Off label use [Unknown]
